FAERS Safety Report 9671593 (Version 1)
Quarter: 2013Q4

REPORT INFORMATION
  Report Type: Spontaneous
  Country: ES (occurrence: None)
  Receive Date: 20131104
  Receipt Date: 20131104
  Transmission Date: 20140711
  Serious: Yes (Other)
  Sender: FDA-Public Use
  Company Number: 2013P1020498

PATIENT
  Age: 17 Month
  Sex: Male

DRUGS (3)
  1. RIFAMPIN [Suspect]
     Indication: TUBERCULOSIS
  2. ISONIAZID [Suspect]
     Indication: TUBERCULOSIS
  3. PYRAZINAMIDE [Suspect]
     Indication: TUBERCULOSIS

REACTIONS (4)
  - Bone abscess [None]
  - Abscess soft tissue [None]
  - Paradoxical drug reaction [None]
  - Tuberculosis [None]
